FAERS Safety Report 5889799-5 (Version None)
Quarter: 2008Q3

REPORT INFORMATION
  Report Type: 
  Country: None (occurrence: None)
  Receive Date: 20080919
  Receipt Date: 20080917
  Transmission Date: 20090109
  Serious: Yes (Other)
  Sender: FDA-Public Use
  Company Number: AU-ALLERGAN-0811618US

PATIENT
  Sex: Female

DRUGS (1)
  1. BLEPH-10 [Suspect]
     Indication: EYE INFECTION
     Route: 061

REACTIONS (4)
  - FATIGUE [None]
  - LACK OF SPONTANEOUS SPEECH [None]
  - RESPIRATORY ARREST [None]
  - SKIN WARM [None]
